APPROVED DRUG PRODUCT: DOXERCALCIFEROL
Active Ingredient: DOXERCALCIFEROL
Strength: 4MCG/2ML (2MCG/ML)
Dosage Form/Route: INJECTABLE;INJECTION
Application: A215810 | Product #001 | TE Code: AP
Applicant: ALEMBIC PHARMACEUTICALS LTD
Approved: Jun 15, 2023 | RLD: No | RS: No | Type: RX